FAERS Safety Report 18910024 (Version 2)
Quarter: 2021Q2

REPORT INFORMATION
  Report Type: Spontaneous
  Country: US (occurrence: US)
  Receive Date: 20210218
  Receipt Date: 20210520
  Transmission Date: 20210717
  Serious: Yes (Other)
  Sender: FDA-Public Use
  Company Number: US-GLAXOSMITHKLINE-US2021GSK045695

PATIENT
  Sex: Female

DRUGS (2)
  1. ZANTAC [Suspect]
     Active Substance: RANITIDINE HYDROCHLORIDE
     Indication: INTESTINAL ULCER
     Dosage: UNKNOWN AT THIS TIME PRESCRIPTION
     Route: 065
     Dates: start: 198501, end: 198901
  2. ZANTAC [Suspect]
     Active Substance: RANITIDINE HYDROCHLORIDE
     Indication: INTESTINAL ULCER
     Dosage: UNKNOWN AT THIS TIME PRESCRIPTION
     Route: 065
     Dates: start: 198501, end: 198901

REACTIONS (1)
  - Breast cancer [Unknown]
